FAERS Safety Report 20109589 (Version 1)
Quarter: 2021Q4

REPORT INFORMATION
  Report Type: Spontaneous
  Country: US (occurrence: None)
  Receive Date: 20211124
  Receipt Date: 20211124
  Transmission Date: 20220303
  Serious: Yes (Other)
  Sender: FDA-Public Use
  Company Number: None

PATIENT
  Age: 31 Year
  Sex: Female
  Weight: 51.75 kg

DRUGS (1)
  1. ARMOUR THYROID [Suspect]
     Active Substance: THYROID, PORCINE
     Indication: Hypothyroidism
     Dosage: OTHER QUANTITY : 1 PILL;?
     Route: 048
     Dates: start: 20210417, end: 20210505

REACTIONS (7)
  - Palpitations [None]
  - Gastrointestinal disorder [None]
  - Insomnia [None]
  - Weight decreased [None]
  - Anxiety [None]
  - Alopecia [None]
  - Emotional disorder [None]

NARRATIVE: CASE EVENT DATE: 20210506
